FAERS Safety Report 13115310 (Version 1)
Quarter: 2017Q1

REPORT INFORMATION
  Report Type: Spontaneous
  Country: US (occurrence: US)
  Receive Date: 20170113
  Receipt Date: 20170113
  Transmission Date: 20170428
  Serious: No
  Sender: FDA-Public Use
  Company Number: US-PERRIGO-16US015366

PATIENT
  Age: 51 Year
  Sex: Male

DRUGS (1)
  1. ACETAMINOPHEN-ASPIRIN-CAFFEINE [Suspect]
     Active Substance: ACETAMINOPHEN\ASPIRIN\CAFFEINE
     Indication: HEADACHE
     Dosage: 2 TO 3 TABLETS, UNKNOWN
     Route: 048
     Dates: start: 201603, end: 201603

REACTIONS (3)
  - Drug ineffective [Unknown]
  - Incorrect dose administered [Recovered/Resolved]
  - Expired product administered [Recovered/Resolved]

NARRATIVE: CASE EVENT DATE: 201603
